FAERS Safety Report 5947701-1 (Version None)
Quarter: 2008Q4

REPORT INFORMATION
  Report Type: 
  Country: None (occurrence: None)
  Receive Date: 20081110
  Receipt Date: 20081110
  Transmission Date: 20090506
  Serious: No
  Sender: FDA-Public Use
  Company Number: None

PATIENT
  Sex: Female

DRUGS (1)
  1. OMEPRAZOLE [Suspect]
     Dosage: 20MG  -ONE TAB- DAILY PO
     Route: 048
     Dates: start: 20081026, end: 20081106

REACTIONS (1)
  - DRUG INEFFECTIVE [None]
